FAERS Safety Report 22139966 (Version 2)
Quarter: 2023Q2

REPORT INFORMATION
  Report Type: Spontaneous
  Country: FR (occurrence: FR)
  Receive Date: 20230327
  Receipt Date: 20230403
  Transmission Date: 20230721
  Serious: Yes (Other)
  Sender: FDA-Public Use
  Company Number: FR-ABBVIE-4700575

PATIENT
  Age: 29 Year
  Sex: Female

DRUGS (1)
  1. HUMIRA [Suspect]
     Active Substance: ADALIMUMAB
     Indication: Crohn^s disease
     Route: 058
     Dates: start: 201908

REACTIONS (4)
  - Lymphoma [Unknown]
  - Maternal exposure during pregnancy [Unknown]
  - Arthralgia [Unknown]
  - Interventional procedure [Unknown]

NARRATIVE: CASE EVENT DATE: 20221001
